FAERS Safety Report 9059100 (Version 1)
Quarter: 2013Q1

REPORT INFORMATION
  Report Type: Spontaneous
  Country: US (occurrence: US)
  Receive Date: 20130211
  Receipt Date: 20130211
  Transmission Date: 20140127
  Serious: No
  Sender: FDA-Public Use
  Company Number: US-BRISTOL-MYERS SQUIBB COMPANY-16836751

PATIENT
  Age: 74 Year
  Sex: Female

DRUGS (20)
  1. ERBITUX [Suspect]
     Indication: COLON CANCER
     Dosage: NO OF INF-4?INTERRUPTED ON 07AUG2012
     Route: 042
     Dates: start: 20120626
  2. ERBITUX [Suspect]
     Indication: GASTRIC CANCER
     Dosage: NO OF INF-4?INTERRUPTED ON 07AUG2012
     Route: 042
     Dates: start: 20120626
  3. ERBITUX [Suspect]
     Indication: HEPATIC CANCER
     Dosage: NO OF INF-4?INTERRUPTED ON 07AUG2012
     Route: 042
     Dates: start: 20120626
  4. METFORMIN HCL [Suspect]
     Dosage: TAB
     Route: 048
  5. 5-FLUOROURACIL [Suspect]
     Indication: COLON CANCER
     Dates: start: 20120626
  6. FOLINIC ACID [Suspect]
     Indication: COLON CANCER
     Dates: start: 20120626
  7. IRINOTECAN [Suspect]
     Indication: COLON CANCER
     Dates: start: 20120626
  8. ASPIRIN [Concomitant]
     Dosage: TAB
  9. GABAPENTIN [Concomitant]
     Dosage: CAPS
  10. GLIPIZIDE [Concomitant]
     Dosage: TAB
  11. KLOR-CON M [Concomitant]
     Dosage: 1DF=MEQ ?TAB
  12. LASIX [Concomitant]
     Dosage: TAB
  13. LIDOCAINE [Concomitant]
     Dosage: LIDOCAINE-DIPHENYL-AL-MAG-SIM?MOUTHWASH
  14. MULTIVITAMIN [Concomitant]
     Route: 048
  15. OMEPRAZOLE [Concomitant]
     Dosage: TAB
  16. PERCOCET [Concomitant]
     Dosage: 1DF=5MG-325MG
  17. PRAVASTATIN SODIUM [Concomitant]
     Dosage: TAB
  18. PROVENTIL INHALER [Concomitant]
     Dosage: PROVENTIL HFA 90MCG/ACTUATION AEROSOL INHALER
  19. SEREVENT [Concomitant]
     Dosage: SEREVENT DISKUS
  20. ZOFRAN [Concomitant]
     Dosage: TAB

REACTIONS (9)
  - Rash pruritic [Not Recovered/Not Resolved]
  - Acne [Unknown]
  - Stomatitis [Not Recovered/Not Resolved]
  - Blood glucose decreased [Unknown]
  - Fungal skin infection [Not Recovered/Not Resolved]
  - Weight decreased [Unknown]
  - Hypoacusis [Unknown]
  - Diarrhoea [Unknown]
  - Neutropenia [Unknown]
